FAERS Safety Report 9922297 (Version 1)
Quarter: 2014Q1

REPORT INFORMATION
  Report Type: Report from Study
  Country: FR (occurrence: FR)
  Receive Date: 20140225
  Receipt Date: 20140225
  Transmission Date: 20141002
  Serious: Yes (Other)
  Sender: FDA-Public Use
  Company Number: FR-ACTELION-A-CH2014-95077

PATIENT
  Age: 6 Year
  Sex: Female

DRUGS (4)
  1. ZAVESCA [Suspect]
     Indication: NIEMANN-PICK DISEASE
     Dosage: 100 MG, UNK
     Route: 048
     Dates: end: 20130701
  2. ZAVESCA [Suspect]
     Dosage: 100 MG, BID
     Route: 048
     Dates: start: 20090722
  3. ZAVESCA [Suspect]
     Dosage: 200 MG, BID
     Route: 048
  4. ZAVESCA [Suspect]
     Dosage: 100 MG, BID
     Route: 048

REACTIONS (1)
  - Convulsion [Unknown]
